FAERS Safety Report 6311506-2 (Version None)
Quarter: 2009Q3

REPORT INFORMATION
  Report Type: 
  Country: None (occurrence: None)
  Receive Date: 20090817
  Receipt Date: 20090807
  Transmission Date: 20100115
  Serious: Yes (Hospitalization)
  Sender: FDA-Public Use
  Company Number: PHHO2009US09258

PATIENT
  Sex: Male
  Weight: 47.62 kg

DRUGS (2)
  1. RAD 666 RAD+TAB [Suspect]
     Indication: NEOPLASM MALIGNANT
     Dosage: 50 MG (DAY 1 AND DAY 8)
     Route: 048
     Dates: start: 20090505, end: 20090713
  2. EPO 906 [Suspect]
     Indication: NEOPLASM MALIGNANT
     Dosage: 12 MG/DAY
     Route: 042
     Dates: start: 20090505, end: 20090713

REACTIONS (11)
  - ABDOMINAL CAVITY DRAINAGE [None]
  - ABDOMINAL PAIN [None]
  - APPENDICECTOMY [None]
  - APPENDICITIS [None]
  - BLOOD GLUCOSE INCREASED [None]
  - BLOOD PHOSPHORUS DECREASED [None]
  - BLOOD SODIUM DECREASED [None]
  - GASTROINTESTINAL TUBE INSERTION [None]
  - LAPAROTOMY [None]
  - NAUSEA [None]
  - VOMITING [None]
